FAERS Safety Report 7423637-4 (Version None)
Quarter: 2011Q2

REPORT INFORMATION
  Report Type: 
  Country: None (occurrence: None)
  Receive Date: 20110413
  Receipt Date: 20110413
  Transmission Date: 20111010
  Serious: Yes (Hospitalization)
  Sender: FDA-Public Use
  Company Number: None

PATIENT
  Age: 98 Year
  Sex: Female
  Weight: 60.4 kg

DRUGS (6)
  1. COUMADIN [Suspect]
     Indication: DEEP VEIN THROMBOSIS
     Dosage: 2.5MG DAILY PO RECENT RESTARTED
     Route: 048
  2. KLOR-CON [Concomitant]
  3. DULCOLAX [Concomitant]
  4. LASIX [Concomitant]
  5. TRAMADOL [Concomitant]
  6. ACETAMINOPHEN [Concomitant]

REACTIONS (5)
  - INTERNATIONAL NORMALISED RATIO INCREASED [None]
  - GASTROINTESTINAL HAEMORRHAGE [None]
  - HAEMORRHAGIC ANAEMIA [None]
  - METABOLIC ACIDOSIS [None]
  - DYSPNOEA [None]
